FAERS Safety Report 23993595 (Version 1)
Quarter: 2024Q2

REPORT INFORMATION
  Report Type: Spontaneous
  Country: ZA (occurrence: ZA)
  Receive Date: 20240620
  Receipt Date: 20240620
  Transmission Date: 20240716
  Serious: Yes (Other)
  Sender: FDA-Public Use
  Company Number: ZA-SUN PHARMACEUTICAL INDUSTRIES LTD-2024R1-451107

PATIENT
  Age: 59 Year
  Sex: Male

DRUGS (3)
  1. CLOBETASOL [Suspect]
     Active Substance: CLOBETASOL
     Indication: Cutaneous T-cell lymphoma
     Route: 061
  2. METHOTREXATE [Suspect]
     Active Substance: METHOTREXATE
     Indication: Cutaneous T-cell lymphoma
     Route: 048
  3. FOLIC ACID [Suspect]
     Active Substance: FOLIC ACID
     Indication: Cutaneous T-cell lymphoma
     Dosage: 20 MILLIGRAM/ WEEK
     Route: 065

REACTIONS (2)
  - Therapy partial responder [Unknown]
  - Drug ineffective [Unknown]
